FAERS Safety Report 15906135 (Version 1)
Quarter: 2019Q1

REPORT INFORMATION
  Report Type: Spontaneous
  Country: US (occurrence: US)
  Receive Date: 20190203
  Receipt Date: 20190203
  Transmission Date: 20190417
  Serious: Yes (Other)
  Sender: FDA-Public Use
  Company Number: None

PATIENT
  Age: 32 Year
  Sex: Female
  Weight: 67.5 kg

DRUGS (2)
  1. LEXAPRO GENERIC [Suspect]
     Active Substance: ESCITALOPRAM OXALATE
     Indication: ANXIETY
     Dates: start: 20161111, end: 20181214
  2. IRON [Concomitant]
     Active Substance: IRON

REACTIONS (1)
  - Opiates positive [None]

NARRATIVE: CASE EVENT DATE: 20181214
